FAERS Safety Report 15843754 (Version 1)
Quarter: 2019Q1

REPORT INFORMATION
  Report Type: Spontaneous
  Country: DE (occurrence: DE)
  Receive Date: 20190118
  Receipt Date: 20190118
  Transmission Date: 20190417
  Serious: Yes (Hospitalization)
  Sender: FDA-Public Use
  Company Number: DE-ASTRAZENECA-2019SE08799

PATIENT
  Age: 62 Year
  Sex: Female
  Weight: 50 kg

DRUGS (1)
  1. DAXAS [Suspect]
     Active Substance: ROFLUMILAST
     Route: 048
     Dates: start: 201807

REACTIONS (3)
  - Depressed mood [Unknown]
  - Condition aggravated [Unknown]
  - Infection [Unknown]
